FAERS Safety Report 24549380 (Version 1)
Quarter: 2024Q4

REPORT INFORMATION
  Report Type: Other
  Country: AU (occurrence: AU)
  Receive Date: 20241025
  Receipt Date: 20241025
  Transmission Date: 20250115
  Serious: Yes (Other)
  Sender: NOVA LABORATORIES LIMITED
  Company Number: AU-Nova Laboratories Limited-2163822

PATIENT
  Age: 20 Year
  Sex: Male

DRUGS (8)
  1. PURIXAN [Suspect]
     Active Substance: MERCAPTOPURINE
     Indication: Acute lymphocytic leukaemia
  2. ASPARAGINASE [Suspect]
     Active Substance: ASPARAGINASE
  3. VINCRISTINE SULFATE [Suspect]
     Active Substance: VINCRISTINE SULFATE
  4. PREDNISOLONE [Suspect]
     Active Substance: PREDNISOLONE
  5. METHOTREXATE [Suspect]
     Active Substance: METHOTREXATE
  6. DAUNORUBICIN [Suspect]
     Active Substance: DAUNORUBICIN
  7. CYTARABINE [Suspect]
     Active Substance: CYTARABINE
  8. CYCLOPHOSPHAMIDE [Suspect]
     Active Substance: CYCLOPHOSPHAMIDE

REACTIONS (1)
  - Osteonecrosis [Recovered/Resolved]
